FAERS Safety Report 17622994 (Version 2)
Quarter: 2020Q2

REPORT INFORMATION
  Report Type: Spontaneous
  Country: GB (occurrence: GB)
  Receive Date: 20200403
  Receipt Date: 20200603
  Transmission Date: 20200713
  Serious: Yes (Hospitalization)
  Sender: FDA-Public Use
  Company Number: GB-VERTEX PHARMACEUTICALS-2020-007631

PATIENT
  Sex: Male

DRUGS (17)
  1. AZTREONAM. [Concomitant]
     Active Substance: AZTREONAM
  2. SYMBICORT [Concomitant]
     Active Substance: BUDESONIDE\FORMOTEROL FUMARATE DIHYDRATE
  3. MUCODYNE [Concomitant]
     Active Substance: CARBOCYSTEINE
  4. LAXIDO [Concomitant]
     Active Substance: POLYETHYLENE GLYCOL 3350\POTASSIUM CHLORIDE\SODIUM BICARBONATE\SODIUM CHLORIDE
  5. CUTISONE [FLUTICASONE PROPIONATE] [Concomitant]
  6. TOBI [Concomitant]
     Active Substance: TOBRAMYCIN
  7. DEKA [Concomitant]
  8. KALYDECO [Suspect]
     Active Substance: IVACAFTOR
     Indication: CYSTIC FIBROSIS
     Dosage: 150MG IVACAFTOR, QD
     Route: 048
     Dates: start: 201912, end: 20200313
  9. NOVORAPID [Concomitant]
     Active Substance: INSULIN ASPART
  10. OMEPRAZOLE. [Concomitant]
     Active Substance: OMEPRAZOLE
  11. SALBUTAMOL [Concomitant]
     Active Substance: ALBUTEROL
  12. PHYLLOCONTIN [Concomitant]
     Active Substance: AMINOPHYLLINE
  13. HYODEOXYCHOLIC ACID. [Concomitant]
     Active Substance: HYODEOXYCHOLIC ACID
  14. SYMKEVI [Suspect]
     Active Substance: IVACAFTOR\TEZACAFTOR
     Indication: CYSTIC FIBROSIS
     Dosage: 100MG TEZACAFTOR/150MG IVACAFTOR, DAILY
     Route: 048
     Dates: start: 201912, end: 20200313
  15. HUMALOG [Concomitant]
     Active Substance: INSULIN LISPRO
  16. FLONASE [MOMETASONE FUROATE] [Concomitant]
     Active Substance: MOMETASONE FUROATE
  17. FORTISIP COMPACT [Concomitant]
     Active Substance: CARBOHYDRATES\FATTY ACIDS\MINERALS\PROTEIN\VITAMINS

REACTIONS (1)
  - Infective pulmonary exacerbation of cystic fibrosis [Recovered/Resolved]

NARRATIVE: CASE EVENT DATE: 20200228
